FAERS Safety Report 21305783 (Version 1)
Quarter: 2022Q3

REPORT INFORMATION
  Report Type: Spontaneous
  Country: TH (occurrence: TH)
  Receive Date: 20220908
  Receipt Date: 20220908
  Transmission Date: 20221027
  Serious: Yes (Other)
  Sender: FDA-Public Use
  Company Number: TH-BAUSCH-BL-2022-021355

PATIENT
  Age: 38 Year
  Sex: Male

DRUGS (5)
  1. DEXAMETHASONE [Suspect]
     Active Substance: DEXAMETHASONE
     Indication: Brain neoplasm
     Route: 042
  2. FLUCYTOSINE [Suspect]
     Active Substance: FLUCYTOSINE
     Indication: Cryptococcal meningoencephalitis
     Route: 065
  3. AMPHOTERICIN B [Suspect]
     Active Substance: AMPHOTERICIN B
     Indication: Cryptococcal meningoencephalitis
     Route: 065
  4. MEPERIDINE [Concomitant]
     Active Substance: MEPERIDINE
     Indication: Pain
  5. DEXAMETHASONE [Concomitant]
     Active Substance: DEXAMETHASONE
     Indication: Brain neoplasm
     Route: 042

REACTIONS (2)
  - Intracranial mass [Unknown]
  - Therapy partial responder [Unknown]
